FAERS Safety Report 5345851-4 (Version None)
Quarter: 2007Q2

REPORT INFORMATION
  Report Type: 
  Country: None (occurrence: None)
  Receive Date: 20070426
  Receipt Date: 20061221
  Transmission Date: 20071010
  Serious: Yes (Hospitalization)
  Sender: FDA-Public Use
  Company Number: US-JNJFOC-20060307730

PATIENT
  Age: 84 Year
  Sex: Male
  Weight: 77.1115 kg

DRUGS (15)
  1. RAZADYNE ER [Suspect]
     Indication: DEMENTIA
     Dosage: 8 MG, 1 IN 1 DAY, ORAL
     Route: 048
     Dates: start: 20060323, end: 20060325
  2. RAZADYNE ER [Suspect]
     Indication: DEMENTIA ALZHEIMER'S TYPE
     Dosage: 8 MG, 1 IN 1 DAY, ORAL
     Route: 048
     Dates: start: 20060323, end: 20060325
  3. VASOTEC (ENALAPRIL MALEATE) TABLET [Concomitant]
  4. PRAVACHOL [Concomitant]
  5. COREG [Concomitant]
  6. COUMADIN [Concomitant]
  7. TOPROL-XL [Concomitant]
  8. PROSCAR [Concomitant]
  9. LASIX [Concomitant]
  10. CARDURA [Concomitant]
  11. SENOKOT [Concomitant]
  12. FLOMAX [Concomitant]
  13. LACTULOSE [Concomitant]
  14. NAMENDA [Concomitant]
  15. TRAZODONE HCL [Concomitant]

REACTIONS (4)
  - CEREBROVASCULAR ACCIDENT [None]
  - CONFUSIONAL STATE [None]
  - DYSKINESIA [None]
  - LETHARGY [None]
